FAERS Safety Report 9042508 (Version 1)
Quarter: 2013Q1

REPORT INFORMATION
  Report Type: Report from Study
  Country: US (occurrence: US)
  Receive Date: 20130129
  Receipt Date: 20130129
  Transmission Date: 20140127
  Serious: No
  Sender: FDA-Public Use
  Company Number: US-ABBOTT-12P-163-0907783-00

PATIENT
  Sex: Male

DRUGS (2)
  1. HUMIRA 40 MG/0.8 ML PEN [Suspect]
     Indication: CROHN^S DISEASE
     Dates: start: 201007, end: 201109
  2. HUMIRA 40 MG/0.8 ML PEN [Suspect]
     Dosage: 1 PEN UNDER SKIN EVERY WEEK
     Dates: start: 201109

REACTIONS (4)
  - Diarrhoea [Recovering/Resolving]
  - Pyrexia [Recovered/Resolved]
  - Pallor [Unknown]
  - Asthenia [Unknown]
